FAERS Safety Report 11741790 (Version 2)
Quarter: 2015Q4

REPORT INFORMATION
  Report Type: Spontaneous
  Country: DE (occurrence: DE)
  Receive Date: 20151116
  Receipt Date: 20151202
  Transmission Date: 20160304
  Serious: Yes (Death, Hospitalization, Other)
  Sender: FDA-Public Use
  Company Number: DE-ACTAVIS-2015-24576

PATIENT
  Age: 20 Year
  Sex: Female

DRUGS (4)
  1. IFOSFAMIDE. [Concomitant]
     Active Substance: IFOSFAMIDE
     Indication: SYNOVIAL SARCOMA
     Dosage: 3 G/M^2 ON DAYS 1?3 OF EVERY 3-WEEKS CYCLE, 4 CYCLES
     Route: 065
  2. HEPARIN [Concomitant]
     Active Substance: HEPARIN SODIUM
     Indication: PULMONARY EMBOLISM
     Dosage: ADJUSTED TO A PARTIAL THROMBOPLASTIN TIME OF 60-90 SECONDS
     Route: 042
  3. DOXORUBICIN (UNKNOWN) [Suspect]
     Active Substance: DOXORUBICIN
     Indication: SYNOVIAL SARCOMA
     Dosage: 60 MG/M2, CYCLICAL (ON DAY 1, EVERY 3 WEEKS), 4 CYCLES
     Route: 065
  4. IFOSFAMIDE. [Concomitant]
     Active Substance: IFOSFAMIDE
     Dosage: ON DAYS 1-2 AND 22-23 OF THE RADIATION COURSE
     Route: 065

REACTIONS (2)
  - Cardiotoxicity [Not Recovered/Not Resolved]
  - Cardiogenic shock [Fatal]
